FAERS Safety Report 10644870 (Version 4)
Quarter: 2025Q3

REPORT INFORMATION
  Report Type: Report from Study
  Country: EU (occurrence: EU)
  Receive Date: 20141211
  Receipt Date: 20250924
  Transmission Date: 20251021
  Serious: Yes (Other)
  Sender: ROCHE
  Company Number: None

PATIENT

DRUGS (2)
  1. RITUXIMAB [Suspect]
     Active Substance: RITUXIMAB
     Indication: Myasthenia gravis
     Route: 042
  2. PREDNISONE [Concomitant]
     Active Substance: PREDNISONE

REACTIONS (7)
  - Myocarditis [Unknown]
  - Bronchitis [Unknown]
  - Influenza like illness [Unknown]
  - Hot flush [Unknown]
  - Paraesthesia [Unknown]
  - Drug resistance [Unknown]
  - Off label use [Unknown]
